FAERS Safety Report 19814456 (Version 4)
Quarter: 2022Q3

REPORT INFORMATION
  Report Type: Spontaneous
  Country: US (occurrence: US)
  Receive Date: 20210910
  Receipt Date: 20220714
  Transmission Date: 20221027
  Serious: Yes (Hospitalization, Other)
  Sender: FDA-Public Use
  Company Number: US-SA-SAC20210908001260

PATIENT
  Age: 48 Year
  Sex: Male

DRUGS (3)
  1. DUPIXENT [Suspect]
     Active Substance: DUPILUMAB
     Indication: Asthma
     Dosage: 300 MG, QOW
     Route: 058
     Dates: start: 20201121
  2. ALTEPLASE [Concomitant]
     Active Substance: ALTEPLASE
  3. DUPIXENT [Suspect]
     Active Substance: DUPILUMAB
     Indication: Asthma
     Dosage: 300 MG, QOW
     Route: 058
     Dates: start: 20201022

REACTIONS (4)
  - Dyspnoea [Unknown]
  - COVID-19 [Unknown]
  - COVID-19 pneumonia [Unknown]
  - Product use issue [Unknown]

NARRATIVE: CASE EVENT DATE: 20201121
